FAERS Safety Report 7435598-2 (Version None)
Quarter: 2011Q2

REPORT INFORMATION
  Report Type: 
  Country: None (occurrence: None)
  Receive Date: 20110425
  Receipt Date: 20110414
  Transmission Date: 20111010
  Serious: Yes (Other)
  Sender: FDA-Public Use
  Company Number: US-ASTRAZENECA-2011SE02060

PATIENT
  Age: 63 Year
  Sex: Female
  Weight: 56.7 kg

DRUGS (4)
  1. PREMARIN [Concomitant]
     Route: 048
  2. EYE DROPS [Concomitant]
  3. NEXIUM [Suspect]
     Indication: GASTROOESOPHAGEAL REFLUX DISEASE
     Route: 048
     Dates: start: 20070101, end: 20110106
  4. KLONOPIN [Concomitant]
     Indication: PANIC DISORDER
     Route: 048
     Dates: start: 19950101

REACTIONS (4)
  - DYSPEPSIA [None]
  - CATARACT OPERATION [None]
  - ABDOMINAL PAIN UPPER [None]
  - DRUG DOSE OMISSION [None]
